FAERS Safety Report 4599785-3 (Version None)
Quarter: 2005Q1

REPORT INFORMATION
  Report Type: 
  Country: None (occurrence: None)
  Receive Date: 20050303
  Receipt Date: 20050217
  Transmission Date: 20050727
  Serious: Yes (Hospitalization)
  Sender: FDA-Public Use
  Company Number: 2005BI003745

PATIENT
  Age: 44 Year
  Sex: Male
  Weight: 68.0396 kg

DRUGS (2)
  1. AVONEX [Suspect]
     Indication: MULTIPLE SCLEROSIS
     Dosage: 30 UG;QW;IM
     Route: 030
     Dates: start: 20000101, end: 20010101
  2. BACLOFEN [Concomitant]

REACTIONS (5)
  - ABASIA [None]
  - DECUBITUS ULCER [None]
  - INFECTED SKIN ULCER [None]
  - MOBILITY DECREASED [None]
  - MUSCLE SPASTICITY [None]
